FAERS Safety Report 7929909-9 (Version None)
Quarter: 2011Q4

REPORT INFORMATION
  Report Type: 
  Country: None (occurrence: None)
  Receive Date: 20111118
  Receipt Date: 20111118
  Transmission Date: 20120403
  Serious: Yes (Life-Threatening)
  Sender: FDA-Public Use
  Company Number: None

PATIENT
  Sex: Male
  Weight: 80.7403 kg

DRUGS (1)
  1. FLOMAX [Suspect]
     Indication: POLLAKIURIA
     Dosage: 1 PILL AT BEDTIME
     Dates: start: 20081006

REACTIONS (9)
  - HEAD INJURY [None]
  - SPEECH DISORDER [None]
  - TRANSIENT ISCHAEMIC ATTACK [None]
  - MIDDLE INSOMNIA [None]
  - DIZZINESS [None]
  - PAIN [None]
  - BLOOD PRESSURE DECREASED [None]
  - HYPERHIDROSIS [None]
  - NAUSEA [None]
